FAERS Safety Report 7237369-9 (Version None)
Quarter: 2011Q1

REPORT INFORMATION
  Report Type: 
  Country: None (occurrence: None)
  Receive Date: 20110121
  Receipt Date: 20110111
  Transmission Date: 20110831
  Serious: Yes (Hospitalization)
  Sender: FDA-Public Use
  Company Number: US-BRISTOL-MYERS SQUIBB COMPANY-15498256

PATIENT
  Age: 77 Year
  Sex: Male
  Weight: 101 kg

DRUGS (16)
  1. MEDROL [Concomitant]
     Route: 065
     Dates: end: 20110105
  2. MULTI-VITAMIN [Concomitant]
     Route: 065
     Dates: start: 20091201
  3. MAGNESIUM OXIDE [Concomitant]
     Dosage: 1500 MG
     Route: 065
     Dates: start: 20101222
  4. IBUPROFEN [Concomitant]
     Route: 065
     Dates: start: 20050101
  5. TYLENOL EXTRA STRENGTH [Concomitant]
     Route: 065
     Dates: start: 20000101
  6. HEPARIN LOCK-FLUSH [Concomitant]
     Route: 065
     Dates: start: 20101217
  7. CETUXIMAB [Suspect]
     Indication: TRANSITIONAL CELL CARCINOMA
     Dosage: 35.7143MG/M2
     Route: 042
     Dates: start: 20101216
  8. CISPLATIN [Suspect]
     Indication: TRANSITIONAL CELL CARCINOMA
     Dosage: 2.5MG/M2
     Route: 042
     Dates: start: 20101216
  9. DOXYCYCLINE [Concomitant]
     Route: 065
     Dates: start: 20101222
  10. SENOKOT [Concomitant]
     Dosage: 1DF:2TABS
     Route: 048
  11. TOPROL-XL [Concomitant]
     Dates: start: 20101213
  12. BENADRYL [Concomitant]
     Route: 065
     Dates: start: 20101222
  13. ALPRAZOLAM [Concomitant]
     Route: 048
     Dates: start: 20100701
  14. GEMCITABINE [Suspect]
     Indication: TRANSITIONAL CELL CARCINOMA
     Dosage: DURATION:7DAYS; 23DEC2010:RECENT INF
     Route: 042
     Dates: start: 20101216
  15. ASPIRIN [Concomitant]
     Route: 048
     Dates: start: 20101213
  16. CLEOCIN [Concomitant]
     Route: 061
     Dates: start: 20101230

REACTIONS (4)
  - HYPONATRAEMIA [None]
  - NEUTROPHIL COUNT DECREASED [None]
  - URINARY TRACT INFECTION [None]
  - FATIGUE [None]
